FAERS Safety Report 14800770 (Version 2)
Quarter: 2018Q2

REPORT INFORMATION
  Report Type: Spontaneous
  Country: FR (occurrence: FR)
  Receive Date: 20180424
  Receipt Date: 20180427
  Transmission Date: 20180711
  Serious: Yes (Other)
  Sender: FDA-Public Use
  Company Number: FR-MYLANLABS-2018M1025789

PATIENT
  Age: 71 Year
  Sex: Female
  Weight: 113 kg

DRUGS (11)
  1. ROPIVACAINE [Suspect]
     Active Substance: ROPIVACAINE
     Indication: LOCAL ANAESTHESIA
     Dosage: 95 MG, TOTAL
     Route: 050
     Dates: start: 20180202, end: 20180202
  2. CEFAZOLINE MYLAN [Concomitant]
     Active Substance: CEFAZOLIN SODIUM
     Indication: ANTIBIOTIC PROPHYLAXIS
     Dosage: 4 G, TOTAL
     Route: 042
     Dates: start: 20180202, end: 20180202
  3. ACUPAN [Suspect]
     Active Substance: NEFOPAM HYDROCHLORIDE
     Indication: PAIN PROPHYLAXIS
     Dosage: 20 MG, TOTAL
     Route: 040
     Dates: start: 20180202, end: 20180202
  4. SUFENTANIL MERCK [Suspect]
     Active Substance: SUFENTANIL
     Indication: ANAESTHESIA
     Dosage: 55 ?G, TOTAL
     Route: 042
     Dates: start: 20180202, end: 20180202
  5. LIDOCAINE AGUETTANT [Suspect]
     Active Substance: LIDOCAINE
     Indication: LOCAL ANAESTHESIA
     Dosage: 100 MG, TOTAL
     Route: 050
     Dates: start: 20180202, end: 20180202
  6. EXACYL [Suspect]
     Active Substance: TRANEXAMIC ACID
     Indication: HAEMORRHAGE PROPHYLAXIS
     Dosage: 1 G, TOTAL
     Route: 042
     Dates: start: 20180202, end: 20180202
  7. LOXEN                              /00639802/ [Suspect]
     Active Substance: NICARDIPINE HYDROCHLORIDE
     Indication: PRODUCT USED FOR UNKNOWN INDICATION
     Dosage: UNK
     Route: 041
  8. TRACRIUM [Concomitant]
     Active Substance: ATRACURIUM BESYLATE
     Indication: NEUROMUSCULAR BLOCKING THERAPY
     Dosage: 50 MG, TOTAL
     Route: 042
     Dates: start: 20180202, end: 20180202
  9. EPHEDRINE. [Concomitant]
     Active Substance: EPHEDRINE
     Indication: PRODUCT USED FOR UNKNOWN INDICATION
     Dosage: 6 MG, TOTAL
     Route: 042
     Dates: start: 20180202, end: 20180202
  10. PROPOFOL. [Suspect]
     Active Substance: PROPOFOL
     Indication: ANAESTHESIA
     Dosage: 200 MG, TOTAL
     Route: 042
     Dates: start: 20180202, end: 20180202
  11. KETAMINE RENAUDIN [Suspect]
     Active Substance: KETAMINE
     Indication: ANAESTHESIA
     Dosage: 15 MG, TOTAL
     Route: 040
     Dates: start: 20180202, end: 20180202

REACTIONS (1)
  - Clonus [Recovered/Resolved]

NARRATIVE: CASE EVENT DATE: 20180202
